FAERS Safety Report 9402394 (Version 2)
Quarter: 2013Q4

REPORT INFORMATION
  Report Type: Report from Study
  Country: AU (occurrence: AU)
  Receive Date: 20130716
  Receipt Date: 20131205
  Transmission Date: 20140711
  Serious: Yes (Hospitalization, Other)
  Sender: FDA-Public Use
  Company Number: AU-ROCHE-1231554

PATIENT
  Age: 69 Year
  Sex: Male

DRUGS (2)
  1. ACTEMRA [Suspect]
     Indication: RHEUMATOID ARTHRITIS
     Route: 042
     Dates: start: 20130123
  2. ACTEMRA [Suspect]
     Route: 042
     Dates: start: 20130123

REACTIONS (4)
  - Arthritis bacterial [Not Recovered/Not Resolved]
  - Pyrexia [Unknown]
  - Delirium [Unknown]
  - Musculoskeletal pain [Unknown]
